FAERS Safety Report 8192968-5 (Version None)
Quarter: 2012Q1

REPORT INFORMATION
  Report Type: 
  Country: None (occurrence: None)
  Receive Date: 20120221
  Receipt Date: 20111025
  Transmission Date: 20120608
  Serious: No
  Sender: FDA-Public Use
  Company Number: 044250

PATIENT
  Age: 17 Year
  Sex: Female
  Weight: 74.4 kg

DRUGS (3)
  1. LACOSAMIDE [Suspect]
     Indication: CONVULSION
     Dosage: SEE IMAGE
     Route: 048
     Dates: start: 20110928
  2. LACOSAMIDE [Suspect]
     Indication: CONVULSION
     Dosage: SEE IMAGE
     Route: 048
     Dates: start: 20110501, end: 20110927
  3. LAMICTAL [Concomitant]

REACTIONS (4)
  - VOMITING [None]
  - VISION BLURRED [None]
  - DIZZINESS [None]
  - DIPLOPIA [None]
